FAERS Safety Report 11533207 (Version 3)
Quarter: 2017Q4

REPORT INFORMATION
  Report Type: Report from Study
  Country: JP (occurrence: JP)
  Receive Date: 20150921
  Receipt Date: 20171101
  Transmission Date: 20180320
  Serious: Yes (Death, Other)
  Sender: FDA-Public Use
  Company Number: JP-REGENERON PHARMACEUTICALS, INC.-2014-20798

PATIENT

DRUGS (51)
  1. EYLEA [Suspect]
     Active Substance: AFLIBERCEPT
     Dosage: 2 MG, ONCE,LEFT EYE
     Route: 047
     Dates: start: 20140226, end: 20140226
  2. EYLEA [Suspect]
     Active Substance: AFLIBERCEPT
     Dosage: 2 MG, ONCE,LEFT EYE
     Route: 047
     Dates: start: 20140326, end: 20140326
  3. EYLEA [Suspect]
     Active Substance: AFLIBERCEPT
     Dosage: 2 MG, ONCE,LEFT EYE
     Route: 047
     Dates: start: 20140423, end: 20140423
  4. WARFARIN [Concomitant]
     Active Substance: WARFARIN
     Indication: PRODUCT USED FOR UNKNOWN INDICATION
     Dosage: UNK
     Route: 048
  5. BENOXIL [Concomitant]
     Active Substance: BENOXINATE HYDROCHLORIDE
     Dosage: LEFT EYE
     Route: 047
     Dates: start: 20140625, end: 20140625
  6. BENOXIL [Concomitant]
     Active Substance: BENOXINATE HYDROCHLORIDE
     Dosage: LEFT EYE
     Route: 047
     Dates: start: 20140917, end: 20140917
  7. GATIFLO [Concomitant]
     Active Substance: GATIFLOXACIN
     Dosage: LEFT EYE
     Route: 047
     Dates: start: 20140423, end: 20140423
  8. ISODINE [Concomitant]
     Active Substance: POVIDONE-IODINE
     Dosage: LEFT EYE
     Route: 047
     Dates: start: 20140528, end: 20140528
  9. EYLEA [Suspect]
     Active Substance: AFLIBERCEPT
     Dosage: 2 MG, ONCE,LEFT EYE
     Route: 047
     Dates: start: 20140625, end: 20140625
  10. GATIFLO [Concomitant]
     Active Substance: GATIFLOXACIN
     Dosage: LEFT EYE
     Route: 047
     Dates: start: 20140326, end: 20140326
  11. GATIFLO [Concomitant]
     Active Substance: GATIFLOXACIN
     Dosage: LEFT EYE
     Route: 047
     Dates: start: 20141029, end: 20141029
  12. MYDRIN P [Concomitant]
     Active Substance: PHENYLEPHRINE HYDROCHLORIDE\TROPICAMIDE
     Indication: MYDRIASIS
     Dosage: LEFT EYE, EVERYTIME OF ADMINISTRATION OF EYLEA
     Route: 047
     Dates: start: 20140129, end: 20140129
  13. MYDRIN P [Concomitant]
     Active Substance: PHENYLEPHRINE HYDROCHLORIDE\TROPICAMIDE
     Dosage: LEFT EYES
     Route: 047
     Dates: start: 20140528, end: 20140528
  14. MYDRIN P [Concomitant]
     Active Substance: PHENYLEPHRINE HYDROCHLORIDE\TROPICAMIDE
     Dosage: LEFT EYES
     Route: 047
     Dates: start: 20140625, end: 20140625
  15. BENOXIL [Concomitant]
     Active Substance: BENOXINATE HYDROCHLORIDE
     Dosage: LEFT EYE
     Route: 047
     Dates: start: 20140528, end: 20140528
  16. ISODINE [Concomitant]
     Active Substance: POVIDONE-IODINE
     Indication: INFECTION PROPHYLAXIS
     Dosage: LEFT EYE, EVERYTIME OF ADMINISTRATION OF EYLEA
     Route: 047
     Dates: start: 20140129, end: 20140129
  17. ISODINE [Concomitant]
     Active Substance: POVIDONE-IODINE
     Dosage: LEFT EYE
     Route: 047
     Dates: start: 20140326, end: 20140326
  18. EYLEA [Suspect]
     Active Substance: AFLIBERCEPT
     Indication: NEOVASCULAR AGE-RELATED MACULAR DEGENERATION
     Dosage: 2 MG, ONCE,LEFT EYE
     Route: 047
     Dates: start: 20140129, end: 20140129
  19. EYLEA [Suspect]
     Active Substance: AFLIBERCEPT
     Dosage: 2 MG, ONCE,LEFT EYE
     Route: 047
     Dates: start: 20140917, end: 20140917
  20. GATIFLO [Concomitant]
     Active Substance: GATIFLOXACIN
     Dosage: LEFT EYE
     Route: 047
     Dates: start: 20140226, end: 20140226
  21. GATIFLO [Concomitant]
     Active Substance: GATIFLOXACIN
     Dosage: LEFT EYE
     Route: 047
     Dates: start: 20140625, end: 20140625
  22. XYLOCAINE [Concomitant]
     Active Substance: LIDOCAINE HYDROCHLORIDE
     Dosage: LEFT EYE
     Route: 047
     Dates: start: 20140528, end: 20140528
  23. XYLOCAINE [Concomitant]
     Active Substance: LIDOCAINE HYDROCHLORIDE
     Dosage: LEFT EYE
     Route: 047
     Dates: start: 20141029, end: 20141029
  24. MYDRIN P [Concomitant]
     Active Substance: PHENYLEPHRINE HYDROCHLORIDE\TROPICAMIDE
     Dosage: LEFT EYES
     Route: 047
     Dates: start: 20140423, end: 20140423
  25. MYDRIN P [Concomitant]
     Active Substance: PHENYLEPHRINE HYDROCHLORIDE\TROPICAMIDE
     Dosage: LEFT EYES
     Route: 047
     Dates: start: 20141029, end: 20141029
  26. GATIFLO [Concomitant]
     Active Substance: GATIFLOXACIN
     Dosage: LEFT EYE
     Route: 047
     Dates: start: 20140528, end: 20140528
  27. IODINE. [Concomitant]
     Active Substance: IODINE
     Indication: INFECTION PROPHYLAXIS
     Dosage: EYE AND PERIOCULAR DISINFECTION
  28. ISODINE [Concomitant]
     Active Substance: POVIDONE-IODINE
     Dosage: LEFT EYE
     Route: 047
     Dates: start: 20140423, end: 20140423
  29. EYLEA [Suspect]
     Active Substance: AFLIBERCEPT
     Dosage: 2 MG, ONCE,LEFT EYE
     Route: 047
     Dates: start: 20140528, end: 20140528
  30. MYDRIN P [Concomitant]
     Active Substance: PHENYLEPHRINE HYDROCHLORIDE\TROPICAMIDE
     Dosage: LEFT EYES
     Route: 047
     Dates: start: 20140917, end: 20140917
  31. BENOXIL [Concomitant]
     Active Substance: BENOXINATE HYDROCHLORIDE
     Dosage: LEFT EYE
     Route: 047
     Dates: start: 20140423, end: 20140423
  32. ISODINE [Concomitant]
     Active Substance: POVIDONE-IODINE
     Dosage: LEFT EYE
     Route: 047
     Dates: start: 20140917, end: 20140917
  33. EYLEA [Suspect]
     Active Substance: AFLIBERCEPT
     Dosage: 2 MG, ONCE,LEFT EYE
     Route: 047
     Dates: start: 20141029, end: 20141029
  34. WARFARIN [Concomitant]
     Active Substance: WARFARIN
     Dosage: UNK
     Route: 048
  35. GATIFLO [Concomitant]
     Active Substance: GATIFLOXACIN
     Indication: INFECTION PROPHYLAXIS
     Dosage: LEFT EYE, EVERYTIME OF ADMINISTRATION OF EYLEA
     Route: 047
     Dates: start: 20140129, end: 20140129
  36. XYLOCAINE [Concomitant]
     Active Substance: LIDOCAINE HYDROCHLORIDE
     Dosage: LEFT EYE
     Route: 047
     Dates: start: 20140423, end: 20140423
  37. XYLOCAINE [Concomitant]
     Active Substance: LIDOCAINE HYDROCHLORIDE
     Dosage: LEFT EYE
     Route: 047
     Dates: start: 20140625, end: 20140625
  38. BENOXIL [Concomitant]
     Active Substance: BENOXINATE HYDROCHLORIDE
     Dosage: LEFT EYE
     Route: 047
     Dates: start: 20140226, end: 20140226
  39. ISODINE [Concomitant]
     Active Substance: POVIDONE-IODINE
     Dosage: LEFT EYE
     Route: 047
     Dates: start: 20140226, end: 20140226
  40. GATIFLO [Concomitant]
     Active Substance: GATIFLOXACIN
     Dosage: LEFT EYE
     Route: 047
     Dates: start: 20140917, end: 20140917
  41. XYLOCAINE [Concomitant]
     Active Substance: LIDOCAINE HYDROCHLORIDE
     Indication: ANAESTHESIA PROCEDURE
     Dosage: LEFT EYE, EVERYTIME OF ADMINISTRATION OF EYLEA
     Route: 047
     Dates: start: 20140129, end: 20140129
  42. XYLOCAINE [Concomitant]
     Active Substance: LIDOCAINE HYDROCHLORIDE
     Dosage: LEFT EYE
     Route: 047
     Dates: start: 20140226, end: 20140226
  43. XYLOCAINE [Concomitant]
     Active Substance: LIDOCAINE HYDROCHLORIDE
     Dosage: LEFT EYE
     Route: 047
     Dates: start: 20140326, end: 20140326
  44. XYLOCAINE [Concomitant]
     Active Substance: LIDOCAINE HYDROCHLORIDE
     Dosage: LEFT EYE
     Route: 047
     Dates: start: 20140917, end: 20140917
  45. MYDRIN P [Concomitant]
     Active Substance: PHENYLEPHRINE HYDROCHLORIDE\TROPICAMIDE
     Dosage: LEFT EYES
     Route: 047
     Dates: start: 20140226, end: 20140226
  46. MYDRIN P [Concomitant]
     Active Substance: PHENYLEPHRINE HYDROCHLORIDE\TROPICAMIDE
     Dosage: LEFT EYES
     Route: 047
     Dates: start: 20140326, end: 20140326
  47. BENOXIL [Concomitant]
     Active Substance: BENOXINATE HYDROCHLORIDE
     Indication: ANAESTHESIA PROCEDURE
     Dosage: LEFT EYE, EVERYTIME OF ADMINISTRATION OF EYLEA
     Route: 047
     Dates: start: 20140129, end: 20140129
  48. BENOXIL [Concomitant]
     Active Substance: BENOXINATE HYDROCHLORIDE
     Dosage: LEFT EYE
     Route: 047
     Dates: start: 20140326, end: 20140326
  49. BENOXIL [Concomitant]
     Active Substance: BENOXINATE HYDROCHLORIDE
     Dosage: LEFT EYE
     Route: 047
     Dates: start: 20141029, end: 20141029
  50. ISODINE [Concomitant]
     Active Substance: POVIDONE-IODINE
     Dosage: LEFT EYE
     Route: 047
     Dates: start: 20140625, end: 20140625
  51. ISODINE [Concomitant]
     Active Substance: POVIDONE-IODINE
     Dosage: LEFT EYE
     Route: 047
     Dates: start: 20141029, end: 20141029

REACTIONS (3)
  - Amaurosis fugax [Recovered/Resolved]
  - Cerebral haemorrhage [Fatal]
  - Fall [Fatal]

NARRATIVE: CASE EVENT DATE: 20140501
